FAERS Safety Report 18920674 (Version 1)
Quarter: 2021Q1

REPORT INFORMATION
  Report Type: Spontaneous
  Country: US (occurrence: US)
  Receive Date: 20210222
  Receipt Date: 20210222
  Transmission Date: 20210420
  Serious: No
  Sender: FDA-Public Use
  Company Number: US-DSJP-DSU-2021-104847

PATIENT
  Sex: Female

DRUGS (1)
  1. SAVAYSA [Suspect]
     Active Substance: EDOXABAN TOSYLATE
     Indication: THROMBOSIS
     Dosage: UNK
     Route: 048

REACTIONS (11)
  - Dyspnoea [Unknown]
  - Throat tightness [Unknown]
  - Mental impairment [Unknown]
  - Speech disorder [Unknown]
  - Balance disorder [Unknown]
  - Chest discomfort [Unknown]
  - Asthenia [Unknown]
  - Dysphagia [Unknown]
  - Pallor [Unknown]
  - Fatigue [Unknown]
  - Pharyngeal swelling [Unknown]
